FAERS Safety Report 4757929-4 (Version None)
Quarter: 2005Q3

REPORT INFORMATION
  Report Type: 
  Country: None (occurrence: None)
  Receive Date: 20050831
  Receipt Date: 20050822
  Transmission Date: 20060218
  Serious: Yes (Life-Threatening)
  Sender: FDA-Public Use
  Company Number: GB-ABBOTT-05P-167-0309237-00

PATIENT
  Age: 52 Year
  Sex: Male
  Weight: 118 kg

DRUGS (1)
  1. ERYTHROMYCIN [Suspect]
     Indication: LOWER RESPIRATORY TRACT INFECTION
     Route: 048
     Dates: start: 20050306, end: 20050307

REACTIONS (2)
  - CARDIAC FAILURE [None]
  - DYSPNOEA [None]
